APPROVED DRUG PRODUCT: CEPHRADINE
Active Ingredient: CEPHRADINE
Strength: 125MG/5ML
Dosage Form/Route: FOR SUSPENSION;ORAL
Application: A062858 | Product #001
Applicant: BARR LABORATORIES INC
Approved: May 19, 1988 | RLD: No | RS: No | Type: DISCN